FAERS Safety Report 16388284 (Version 1)
Quarter: 2019Q2

REPORT INFORMATION
  Report Type: Spontaneous
  Country: US (occurrence: US)
  Receive Date: 20190604
  Receipt Date: 20190604
  Transmission Date: 20190711
  Serious: No
  Sender: FDA-Public Use
  Company Number: US-PFIZER INC-2019232413

PATIENT
  Age: 60 Year
  Sex: Male
  Weight: 68.4 kg

DRUGS (1)
  1. ALPRAZOLAM. [Suspect]
     Active Substance: ALPRAZOLAM
     Dosage: 3 DF, 1X/DAY (3 ALPRAZOLAM A DAY THAT WEREN^T THE TIME RELEASE ONES)

REACTIONS (1)
  - Abdominal discomfort [Unknown]
